FAERS Safety Report 5305605-1 (Version None)
Quarter: 2007Q2

REPORT INFORMATION
  Report Type: 
  Country: None (occurrence: None)
  Receive Date: 20070416
  Receipt Date: 20070404
  Transmission Date: 20071010
  Serious: Yes (Life-Threatening, Hospitalization)
  Sender: FDA-Public Use
  Company Number: GXKR2007TR03197

PATIENT
  Age: 61 Year
  Sex: Male

DRUGS (1)
  1. AMOXICILLIN + CLAVULANATE POTASSIUM [Suspect]
     Indication: PHARYNGOLARYNGEAL PAIN
     Dosage: 1000 MG, ONCE/SINGLE, ORAL
     Route: 048

REACTIONS (4)
  - ACUTE CORONARY SYNDROME [None]
  - HYPERSENSITIVITY [None]
  - RASH PRURITIC [None]
  - SIMILAR REACTION ON PREVIOUS EXPOSURE TO DRUG [None]
